FAERS Safety Report 14362459 (Version 1)
Quarter: 2018Q1

REPORT INFORMATION
  Report Type: Spontaneous
  Country: US (occurrence: US)
  Receive Date: 20180108
  Receipt Date: 20180108
  Transmission Date: 20180509
  Serious: No
  Sender: FDA-Public Use
  Company Number: US-DEXPHARM-20170126

PATIENT
  Age: 68 Year
  Sex: Male
  Weight: 81.63 kg

DRUGS (4)
  1. OMEPRAZOLE DELAYED RELEASE TABLETS 20 MG [Suspect]
     Active Substance: OMEPRAZOLE
     Indication: DYSPEPSIA
     Dosage: 20 MG, QAM
     Route: 048
     Dates: start: 2009
  2. LISINOPRIL. [Concomitant]
     Active Substance: LISINOPRIL
     Indication: HYPERTENSION
     Route: 048
     Dates: start: 201702
  3. MELOXICAM. [Interacting]
     Active Substance: MELOXICAM
     Indication: ARTHRITIS
     Dosage: ONE TABLET, QHS
     Route: 048
     Dates: start: 2013
  4. LIPITOR [Concomitant]
     Active Substance: ATORVASTATIN CALCIUM
     Indication: BLOOD CHOLESTEROL INCREASED
     Dosage: UNK
     Route: 048
     Dates: start: 201702

REACTIONS (2)
  - Drug interaction [Unknown]
  - Platelet count decreased [Unknown]

NARRATIVE: CASE EVENT DATE: 2010
